FAERS Safety Report 10009454 (Version 1)
Quarter: 2014Q1

REPORT INFORMATION
  Report Type: Spontaneous
  Country: US (occurrence: US)
  Receive Date: 20140312
  Receipt Date: 20140312
  Transmission Date: 20141002
  Serious: No
  Sender: FDA-Public Use
  Company Number: US-INCYTE CORPORATION-2012IN001686

PATIENT
  Age: 87 Year
  Sex: Female

DRUGS (13)
  1. JAKAFI [Suspect]
     Indication: MYELOFIBROSIS
     Dosage: 20 MG, BID
     Route: 048
     Dates: start: 20120727
  2. ALTACE [Concomitant]
  3. ATIVAN [Concomitant]
  4. CARDIZEM [Concomitant]
  5. CENTRUM SILVER [Concomitant]
  6. COREG [Concomitant]
  7. DEXLANSOPRAZOLE/DEXILANT [Concomitant]
  8. FOLIC ACID [Concomitant]
  9. MECLIZINE [Concomitant]
  10. RESTASIS [Concomitant]
  11. SPIRONOLACTONE [Concomitant]
  12. SYNTHROID [Concomitant]
  13. TEKTURNA [Concomitant]

REACTIONS (2)
  - Diarrhoea [Recovered/Resolved]
  - Dizziness [Recovered/Resolved]
